FAERS Safety Report 7307609-6 (Version None)
Quarter: 2011Q1

REPORT INFORMATION
  Report Type: 
  Country: None (occurrence: None)
  Receive Date: 20110211
  Receipt Date: 20110208
  Transmission Date: 20110831
  Serious: Yes (Hospitalization, Other)
  Sender: FDA-Public Use
  Company Number: 2010SP016445

PATIENT
  Age: 33 Year
  Sex: Female

DRUGS (1)
  1. NUVARING [Suspect]
     Indication: PRODUCT USED FOR UNKNOWN INDICATION
     Dates: start: 20060417, end: 20080301

REACTIONS (21)
  - NAUSEA [None]
  - HYPERTENSION [None]
  - MUSCULOSKELETAL PAIN [None]
  - DEEP VEIN THROMBOSIS [None]
  - ACCIDENT [None]
  - OBESITY [None]
  - DYSPEPSIA [None]
  - HAEMORRHAGIC OVARIAN CYST [None]
  - MUSCLE STRAIN [None]
  - ACQUIRED DIAPHRAGMATIC EVENTRATION [None]
  - BLOOD UREA INCREASED [None]
  - PERICARDIAL EFFUSION [None]
  - FEELING ABNORMAL [None]
  - CHILLS [None]
  - ANXIETY [None]
  - INJURY [None]
  - PULMONARY EMBOLISM [None]
  - TENDONITIS [None]
  - BLOOD CREATININE INCREASED [None]
  - PHARYNGITIS [None]
  - DIZZINESS [None]
